FAERS Safety Report 5157762-8 (Version None)
Quarter: 2006Q4

REPORT INFORMATION
  Report Type: 
  Country: None (occurrence: None)
  Receive Date: 20061115
  Receipt Date: 20061030
  Transmission Date: 20070319
  Serious: Yes (Other)
  Sender: FDA-Public Use
  Company Number: 2006JP003455

PATIENT
  Age: 65 Year
  Sex: Female

DRUGS (9)
  1. PROGRAF [Suspect]
     Indication: RHEUMATOID ARTHRITIS
     Dosage: 1.5 MG, UID/QD, ORAL
     Route: 048
     Dates: start: 20060705, end: 20060808
  2. PREDNISOLONE [Suspect]
     Indication: RHEUMATOID ARTHRITIS
     Dosage: 5 MG, BID, ORAL
     Route: 048
     Dates: start: 20060104
  3. OPALMON    (LIMAPROST) TABLET [Suspect]
     Indication: LUMBAR SPINAL STENOSIS
     Dosage: 5 UG, TID, ORAL
     Route: 048
     Dates: start: 20060608, end: 20060808
  4. VOLTAREN [Concomitant]
  5. AZULFIDINE EN-TABS [Concomitant]
  6. ROXATIDINE ACETATE HCL [Concomitant]
  7. BERIZYM              (ENZYMES NOS) GRANULE [Concomitant]
  8. MUCOSTA         (REBAMIPIDE) [Concomitant]
  9. INDACIN             (INDOMETACIN) [Concomitant]

REACTIONS (4)
  - CONDITION AGGRAVATED [None]
  - HAEMOPTYSIS [None]
  - INFECTION [None]
  - RHEUMATOID ARTHRITIS [None]
